FAERS Safety Report 5252899-7 (Version None)
Quarter: 2007Q1

REPORT INFORMATION
  Report Type: 
  Country: None (occurrence: None)
  Receive Date: 20070301
  Receipt Date: 20070216
  Transmission Date: 20070707
  Serious: No
  Sender: FDA-Public Use
  Company Number: PHBS2006JP17377

PATIENT
  Age: 70 Year
  Sex: Female

DRUGS (1)
  1. LAMISIL [Suspect]
     Indication: NAIL TINEA
     Dosage: UNK, UNK
     Route: 048
     Dates: start: 20061027, end: 20061027

REACTIONS (3)
  - ALDOLASE INCREASED [None]
  - BACK PAIN [None]
  - MYALGIA [None]
